FAERS Safety Report 11089703 (Version 4)
Quarter: 2016Q4

REPORT INFORMATION
  Report Type: Spontaneous
  Country: US (occurrence: US)
  Receive Date: 20150505
  Receipt Date: 20161205
  Transmission Date: 20170206
  Serious: Yes (Life-Threatening, Hospitalization)
  Sender: FDA-Public Use
  Company Number: US-BAYER-2015-183196

PATIENT
  Age: 27 Year
  Sex: Female
  Weight: 95.24 kg

DRUGS (1)
  1. MIRENA [Suspect]
     Active Substance: LEVONORGESTREL
     Indication: CONTRACEPTION
     Dosage: 20 MCG/24HR, CONT
     Route: 015
     Dates: start: 20121028, end: 20121121

REACTIONS (11)
  - Pain [None]
  - Menorrhagia [None]
  - Injury [None]
  - Gastrointestinal pain [None]
  - Abdominal pain lower [None]
  - Device issue [None]
  - Uterine perforation [None]
  - Anhedonia [None]
  - Anxiety [None]
  - Emotional distress [None]
  - General physical health deterioration [None]

NARRATIVE: CASE EVENT DATE: 2012
